FAERS Safety Report 5689483-7 (Version None)
Quarter: 2008Q1

REPORT INFORMATION
  Report Type: 
  Country: None (occurrence: None)
  Receive Date: 20080331
  Receipt Date: 20080326
  Transmission Date: 20080703
  Serious: Yes (Hospitalization, Other)
  Sender: FDA-Public Use
  Company Number: US-ABBOTT-08P-163-0431805-00

PATIENT
  Sex: Male
  Weight: 104.3 kg

DRUGS (4)
  1. HUMIRA [Suspect]
     Indication: PSORIATIC ARTHROPATHY
     Dosage: HELD FOR SURGERY
     Route: 058
     Dates: start: 20070701
  2. HUMIRA [Suspect]
     Dosage: HELD FOR SURGERY
     Route: 058
     Dates: end: 20071115
  3. HUMIRA [Suspect]
     Dates: start: 20080115, end: 20080201
  4. LISINOPRIL [Concomitant]
     Indication: HYPERTENSION
     Route: 048
     Dates: start: 20050101

REACTIONS (6)
  - ABSCESS [None]
  - ARTHROPOD BITE [None]
  - GROIN ABSCESS [None]
  - LYMPHADENECTOMY [None]
  - SCROTAL MASS [None]
  - STAPHYLOCOCCAL INFECTION [None]
